FAERS Safety Report 9028718 (Version 1)
Quarter: 2013Q1

REPORT INFORMATION
  Report Type: Report from Study
  Country: US (occurrence: US)
  Receive Date: 20130124
  Receipt Date: 20130124
  Transmission Date: 20140127
  Serious: Yes (Other)
  Sender: FDA-Public Use
  Company Number: US-ABBOTT-12P-163-0934241-00

PATIENT
  Age: 59 None
  Sex: Female

DRUGS (5)
  1. HUMIRA 40 MG/0.8 ML PEN [Suspect]
     Indication: RHEUMATOID ARTHRITIS
     Dates: start: 2005, end: 200610
  2. XANAX [Concomitant]
     Indication: AFFECTIVE DISORDER
  3. LEVOXYL [Concomitant]
     Indication: AUTOIMMUNE THYROIDITIS
  4. CYMBALTA [Concomitant]
     Indication: DEPRESSION
     Dates: start: 2009
  5. UNKNOWN MEDICATION [Concomitant]
     Indication: DEPRESSION
     Dates: end: 2009

REACTIONS (4)
  - Lyme disease [Recovered/Resolved]
  - Rheumatoid arthritis [Recovered/Resolved]
  - Bipolar disorder [Not Recovered/Not Resolved]
  - Injection site urticaria [Not Recovered/Not Resolved]
